FAERS Safety Report 5514252-8 (Version None)
Quarter: 2007Q4

REPORT INFORMATION
  Report Type: 
  Country: None (occurrence: None)
  Receive Date: 20071106
  Receipt Date: 20070214
  Transmission Date: 20080405
  Serious: Yes (Death)
  Sender: FDA-Public Use
  Company Number: US200702002914

PATIENT
  Age: 39 Year
  Sex: Male

DRUGS (1)
  1. PROZAC [Suspect]
     Dates: start: 20020101

REACTIONS (1)
  - COMPLETED SUICIDE [None]
